FAERS Safety Report 9128675 (Version 2)
Quarter: 2013Q3

REPORT INFORMATION
  Report Type: Report from Study
  Country: MX (occurrence: MX)
  Receive Date: 20130125
  Receipt Date: 20130705
  Transmission Date: 20140515
  Serious: Yes (Death)
  Sender: FDA-Public Use
  Company Number: PHHY2013MX006934

PATIENT
  Age: 82 Year
  Sex: Female

DRUGS (1)
  1. TRILEPTAL [Suspect]
     Indication: EPILEPSY
     Dosage: 3 DF, DAILY
     Route: 048

REACTIONS (6)
  - Respiratory failure [Fatal]
  - Cardiac arrest [Fatal]
  - Myocardial infarction [Fatal]
  - Metastases to lung [Fatal]
  - Disease progression [Fatal]
  - Cataract [Unknown]
